FAERS Safety Report 6313320-0 (Version None)
Quarter: 2009Q3

REPORT INFORMATION
  Report Type: 
  Country: None (occurrence: None)
  Receive Date: 20090818
  Receipt Date: 20090811
  Transmission Date: 20100115
  Serious: Yes (Death, Hospitalization)
  Sender: FDA-Public Use
  Company Number: B0577515A

PATIENT
  Sex: Male

DRUGS (12)
  1. LAMICTAL [Suspect]
     Indication: TEMPORAL LOBE EPILEPSY
     Route: 048
     Dates: start: 20090323, end: 20090608
  2. BAKTAR [Concomitant]
     Route: 048
     Dates: start: 20090530
  3. PARIET [Concomitant]
     Route: 048
     Dates: start: 20090312
  4. DEPAKENE [Concomitant]
     Route: 048
     Dates: start: 20090416
  5. RISPERDAL [Concomitant]
     Dates: start: 20090423
  6. BENZALIN [Concomitant]
     Route: 048
     Dates: start: 20090423
  7. SERENACE [Concomitant]
     Dates: start: 20090423
  8. UNKNOWN DRUG [Concomitant]
     Route: 054
     Dates: start: 20090318
  9. ALLELOCK [Concomitant]
     Route: 048
     Dates: start: 20090306
  10. POLARAMINE [Concomitant]
     Dates: start: 20090306
  11. PHENOBARBITAL TAB [Concomitant]
     Dosage: 120MG PER DAY
     Route: 048
     Dates: start: 20090306, end: 20090308
  12. TEGRETOL [Concomitant]
     Dosage: 30MG PER DAY
     Route: 048
     Dates: start: 20090227, end: 20090304

REACTIONS (4)
  - DRUG RASH WITH EOSINOPHILIA AND SYSTEMIC SYMPTOMS [None]
  - EOSINOPHIL COUNT INCREASED [None]
  - PULMONARY FIBROSIS [None]
  - PYREXIA [None]
